FAERS Safety Report 9596657 (Version 2)
Quarter: 2013Q4

REPORT INFORMATION
  Report Type: Spontaneous
  Country: DE (occurrence: DE)
  Receive Date: 20131004
  Receipt Date: 20131028
  Transmission Date: 20140711
  Serious: Yes (Death, Life-Threatening)
  Sender: FDA-Public Use
  Company Number: DE-ASTRAZENECA-2013SE73200

PATIENT
  Age: 690 Month
  Sex: Male
  Weight: 80 kg

DRUGS (3)
  1. BRILIQUE [Suspect]
     Indication: CORONARY ARTERY DISEASE
     Route: 048
     Dates: start: 201211
  2. BRILIQUE [Suspect]
     Indication: STENT PLACEMENT
     Route: 048
     Dates: start: 201211
  3. ASS [Suspect]
     Indication: ACUTE MYOCARDIAL INFARCTION
     Route: 048

REACTIONS (5)
  - Fall [Fatal]
  - Skull fracture [Fatal]
  - Haemorrhage intracranial [Fatal]
  - Alcohol poisoning [Unknown]
  - Off label use [Unknown]
